FAERS Safety Report 8326478-9 (Version None)
Quarter: 2012Q2

REPORT INFORMATION
  Report Type: 
  Country: None (occurrence: None)
  Receive Date: 20120501
  Receipt Date: 20120419
  Transmission Date: 20120825
  Serious: Yes (Hospitalization, Other)
  Sender: FDA-Public Use
  Company Number: US-PFIZER INC-2012096865

PATIENT
  Sex: Male
  Weight: 104 kg

DRUGS (10)
  1. LOPRESSOR [Concomitant]
     Indication: BLOOD PRESSURE ABNORMAL
     Dosage: 100 MG, 2X/DAY
  2. HUMULIN R [Concomitant]
     Dosage: 40 UNITS TWO TIMES DAILY
  3. REVATIO [Suspect]
     Indication: VASODILATATION
     Dosage: UNK
     Dates: start: 20120417
  4. ACETYLSALICYLIC ACID [Concomitant]
     Indication: CARDIOVASCULAR DISORDER
     Dosage: 81 MG, 1X/DAY
  5. POTASSIUM [Concomitant]
     Dosage: UNK
  6. REVATIO [Suspect]
     Indication: PULMONARY HYPERTENSION
     Dosage: 20 MG, 3X/DAY
     Route: 048
     Dates: start: 20120107
  7. SIMVASTATIN [Concomitant]
     Indication: BLOOD CHOLESTEROL INCREASED
     Dosage: UNK
  8. LISINOPRIL [Concomitant]
     Dosage: 40 MG, 2X/DAY
  9. LASIX [Concomitant]
     Dosage: 80MG IN THE MORNING AND 40MG IN THE EVENING
  10. FERROUS SULFATE TAB [Concomitant]
     Dosage: 325 MG, 1X/DAY

REACTIONS (9)
  - PALPITATIONS [None]
  - PNEUMONIA [None]
  - TACHYCARDIA [None]
  - OXYGEN SATURATION DECREASED [None]
  - HAEMOGLOBIN DECREASED [None]
  - BLOOD CREATININE INCREASED [None]
  - CHRONIC OBSTRUCTIVE PULMONARY DISEASE [None]
  - CHEST PAIN [None]
  - ATRIAL FLUTTER [None]
